FAERS Safety Report 23490851 (Version 1)
Quarter: 2024Q1

REPORT INFORMATION
  Report Type: Spontaneous
  Country: US (occurrence: None)
  Receive Date: 20240206
  Receipt Date: 20240206
  Transmission Date: 20240410
  Serious: No
  Sender: FDA-Public Use
  Company Number: US-ROCHE-3378019

PATIENT
  Age: 5 Month
  Sex: Female
  Weight: 5.448 kg

DRUGS (6)
  1. NUTROPIN AQ [Suspect]
     Active Substance: SOMATROPIN
     Indication: Hypopituitarism
     Dosage: AT NIGHT
     Route: 058
     Dates: start: 20230120
  2. NUTROPIN AQ [Suspect]
     Active Substance: SOMATROPIN
  3. NUTROPIN AQ [Suspect]
     Active Substance: SOMATROPIN
     Dosage: AT NIGHT
     Route: 058
     Dates: start: 202301
  4. NUTROPIN AQ [Suspect]
     Active Substance: SOMATROPIN
  5. HYDROCORTISONE [Concomitant]
     Active Substance: HYDROCORTISONE
     Route: 048
     Dates: start: 202301
  6. LEVOTHYROXINE [Concomitant]
     Active Substance: LEVOTHYROXINE\LEVOTHYROXINE SODIUM
     Dosage: 1/2 A TABLET EVERY MORNING
     Route: 048

REACTIONS (8)
  - Injury [Unknown]
  - Haemorrhage [Recovered/Resolved]
  - Product dose omission issue [Unknown]
  - Device difficult to use [Unknown]
  - Product complaint [Unknown]
  - Injury associated with device [Recovered/Resolved]
  - Pain [Recovered/Resolved]
  - Device issue [Unknown]

NARRATIVE: CASE EVENT DATE: 20230625
